FAERS Safety Report 9855313 (Version 2)
Quarter: 2014Q1

REPORT INFORMATION
  Report Type: Spontaneous
  Country: SE (occurrence: SE)
  Receive Date: 20140130
  Receipt Date: 20140130
  Transmission Date: 20141002
  Serious: Yes (Other)
  Sender: FDA-Public Use
  Company Number: SE-PFIZER INC-2013371216

PATIENT
  Age: 69 Year
  Sex: Male
  Weight: 89 kg

DRUGS (4)
  1. CHAMPIX [Suspect]
     Indication: SMOKING CESSATION THERAPY
     Dosage: 0.5 MG, UNK
     Route: 048
     Dates: start: 20131219, end: 20131224
  2. LOSARTAN [Concomitant]
     Dosage: 50 MG, 1X/DAY
     Dates: start: 20121220
  3. METFORMIN [Concomitant]
     Dosage: 500 MG, 2X/DAY
     Dates: start: 20120530
  4. AMLODIPINE [Concomitant]
     Dosage: 5 MG, 1X/DAY
     Dates: start: 20090827

REACTIONS (4)
  - Visual impairment [Unknown]
  - Diarrhoea [Not Recovered/Not Resolved]
  - Poor quality sleep [Not Recovered/Not Resolved]
  - Ocular hyperaemia [Recovering/Resolving]
